FAERS Safety Report 8100519-6 (Version None)
Quarter: 2012Q1

REPORT INFORMATION
  Report Type: 
  Country: None (occurrence: None)
  Receive Date: 20120129
  Receipt Date: 20111111
  Transmission Date: 20120608
  Serious: No
  Sender: FDA-Public Use
  Company Number: US-ABBOTT-11P-163-0873207-00

PATIENT
  Sex: Male

DRUGS (3)
  1. NAPROXEN [Concomitant]
     Indication: ANKYLOSING SPONDYLITIS
  2. INDOMETHACIN [Concomitant]
     Indication: ANKYLOSING SPONDYLITIS
  3. HUMIRA [Suspect]
     Indication: ANKYLOSING SPONDYLITIS
     Route: 058
     Dates: start: 20080101, end: 20100101

REACTIONS (3)
  - DRUG INEFFECTIVE [None]
  - ARTHRALGIA [None]
  - BONE PAIN [None]
